FAERS Safety Report 8195504-2 (Version None)
Quarter: 2012Q1

REPORT INFORMATION
  Report Type: 
  Country: None (occurrence: None)
  Receive Date: 20120308
  Receipt Date: 20120305
  Transmission Date: 20120608
  Serious: Yes (Other)
  Sender: FDA-Public Use
  Company Number: PHHY2012DE019615

PATIENT
  Sex: Male

DRUGS (2)
  1. IBUPROFEN [Concomitant]
  2. EXTAVIA [Suspect]
     Indication: MULTIPLE SCLEROSIS
     Dosage: 1 ML, QOD
     Route: 058

REACTIONS (1)
  - COLITIS ULCERATIVE [None]
